FAERS Safety Report 9424820 (Version 2)
Quarter: 2013Q3

REPORT INFORMATION
  Report Type: Spontaneous
  Country: US (occurrence: US)
  Receive Date: 20130729
  Receipt Date: 20130903
  Transmission Date: 20140515
  Serious: No
  Sender: FDA-Public Use
  Company Number: US-PFIZER INC-2013217890

PATIENT
  Age: 52 Year
  Sex: Female
  Weight: 108.84 kg

DRUGS (8)
  1. LYRICA [Suspect]
     Indication: FIBROMYALGIA
     Dosage: 75 MG, 2X/DAY
     Route: 048
     Dates: start: 20130621
  2. LYRICA [Suspect]
     Dosage: 75 MG, 2X/DAY
     Route: 048
     Dates: start: 2013
  3. BENADRYL [Suspect]
     Indication: SKIN IRRITATION
     Dosage: UNK
     Dates: start: 2013, end: 2013
  4. BENADRYL [Suspect]
     Indication: PRURITUS GENERALISED
  5. BENADRYL [Suspect]
     Indication: RASH
  6. LANTUS SOLOSTAR PEN [Concomitant]
     Dosage: UNK
  7. LANTUS [Concomitant]
     Indication: DIABETES MELLITUS
     Dosage: UNK
  8. HYDROCHLOROTHIAZIDE [Concomitant]
     Indication: HYPERTENSION
     Dosage: UNK

REACTIONS (33)
  - Alopecia [Not Recovered/Not Resolved]
  - Oral pain [Unknown]
  - Tenderness [Unknown]
  - Pain in extremity [Unknown]
  - Back pain [Unknown]
  - Chest pain [Unknown]
  - Chest discomfort [Unknown]
  - Diarrhoea [Unknown]
  - Headache [Unknown]
  - Arthralgia [Recovered/Resolved]
  - Hot flush [Unknown]
  - Uterine pain [Unknown]
  - Constipation [Not Recovered/Not Resolved]
  - Paraesthesia [Unknown]
  - Abdominal pain upper [Not Recovered/Not Resolved]
  - Vision blurred [Unknown]
  - Cough [Unknown]
  - Pruritus [Unknown]
  - Hearing impaired [Unknown]
  - Dysuria [Not Recovered/Not Resolved]
  - Neuropathy peripheral [Unknown]
  - Gait disturbance [Unknown]
  - Joint stiffness [Unknown]
  - Wheezing [Unknown]
  - Weight increased [Unknown]
  - Pain in extremity [Not Recovered/Not Resolved]
  - Skin irritation [Not Recovered/Not Resolved]
  - Pruritus generalised [Not Recovered/Not Resolved]
  - Hypoaesthesia [Not Recovered/Not Resolved]
  - Rash [Not Recovered/Not Resolved]
  - Skin burning sensation [Not Recovered/Not Resolved]
  - Paraesthesia [Not Recovered/Not Resolved]
  - Drug ineffective [Unknown]
